FAERS Safety Report 24141965 (Version 1)
Quarter: 2024Q3

REPORT INFORMATION
  Report Type: Spontaneous
  Country: US (occurrence: None)
  Receive Date: 20240726
  Receipt Date: 20240726
  Transmission Date: 20241017
  Serious: Yes (Death)
  Sender: Public
  Company Number: None

PATIENT
  Age: 57 Year
  Sex: Male

DRUGS (11)
  1. ENVARSUS XR [Suspect]
     Active Substance: TACROLIMUS
     Indication: Liver transplant
     Dosage: FREQUENCY : DAILY;?
     Route: 048
     Dates: start: 20240411, end: 20240722
  2. URSODIOL [Concomitant]
  3. PREDNISONE [Concomitant]
  4. pantroprazole [Concomitant]
  5. OYSCO [Concomitant]
  6. BACTRIM [Concomitant]
  7. mitrazapine [Concomitant]
  8. LEVOTHYROXINE [Concomitant]
  9. HUMULIN R [Concomitant]
     Active Substance: INSULIN HUMAN
  10. AMLODIPINE [Concomitant]
  11. ATOVAQUONE [Concomitant]
     Active Substance: ATOVAQUONE

REACTIONS (1)
  - Death [None]

NARRATIVE: CASE EVENT DATE: 20240722
